FAERS Safety Report 8586545-1 (Version None)
Quarter: 2012Q3

REPORT INFORMATION
  Report Type: 
  Country: None (occurrence: None)
  Receive Date: 20120810
  Receipt Date: 20120810
  Transmission Date: 20120928
  Serious: Yes (Hospitalization, Other)
  Sender: FDA-Public Use
  Company Number: KR-BAYER-2012-081059

PATIENT
  Sex: Male

DRUGS (1)
  1. ASPIRIN [Suspect]
     Indication: PROPHYLAXIS
     Dosage: 1 DF, QD

REACTIONS (5)
  - PAIN [None]
  - THROMBOSIS [None]
  - ABDOMINAL PAIN [None]
  - SPLENIC VEIN THROMBOSIS [None]
  - PANCREATIC DISORDER [None]
